FAERS Safety Report 10519351 (Version 3)
Quarter: 2016Q2

REPORT INFORMATION
  Report Type: Spontaneous
  Country: SE (occurrence: SE)
  Receive Date: 20141015
  Receipt Date: 20160504
  Transmission Date: 20160815
  Serious: Yes (Other)
  Sender: FDA-Public Use
  Company Number: SE-VERTEX PHARMACEUTICALS-2014-002522

PATIENT
  Age: 39 Year
  Sex: Female

DRUGS (1)
  1. INCIVO [Suspect]
     Active Substance: TELAPREVIR
     Indication: CHRONIC HEPATITIS C
     Dosage: UNK
     Route: 048
     Dates: end: 20140303

REACTIONS (7)
  - Blood urine present [Unknown]
  - Vomiting [Unknown]
  - Hypersensitivity vasculitis [Unknown]
  - Skin disorder [Unknown]
  - Haematochezia [Unknown]
  - Epistaxis [Unknown]
  - Hypersensitivity [Unknown]

NARRATIVE: CASE EVENT DATE: 20140302
